FAERS Safety Report 9234252 (Version 2)
Quarter: 2013Q2

REPORT INFORMATION
  Report Type: Spontaneous
  Country: GB (occurrence: GB)
  Receive Date: 20130416
  Receipt Date: 20130626
  Transmission Date: 20140414
  Serious: Yes (Hospitalization)
  Sender: FDA-Public Use
  Company Number: PHHY2013GB035495

PATIENT
  Age: 64 Year
  Sex: Female

DRUGS (1)
  1. LISINOPRIL [Suspect]

REACTIONS (3)
  - Dysphagia [Recovered/Resolved]
  - Speech disorder [Recovered/Resolved]
  - Tongue oedema [Recovered/Resolved]
